FAERS Safety Report 24151601 (Version 1)
Quarter: 2024Q3

REPORT INFORMATION
  Report Type: Spontaneous
  Country: US (occurrence: US)
  Receive Date: 20240730
  Receipt Date: 20240730
  Transmission Date: 20241016
  Serious: No
  Sender: PERRIGO
  Company Number: US-PERRIGO-24US000282

PATIENT
  Age: 64 Year
  Sex: Male
  Weight: 117.91 kg

DRUGS (4)
  1. LORATADINE [Suspect]
     Active Substance: LORATADINE
     Indication: Rhinorrhoea
     Dosage: 10 MG, QD
     Route: 048
     Dates: start: 20231227, end: 20240105
  2. LORATADINE [Suspect]
     Active Substance: LORATADINE
     Indication: Lacrimation increased
  3. LORATADINE [Suspect]
     Active Substance: LORATADINE
     Indication: Sneezing
  4. LORATADINE [Suspect]
     Active Substance: LORATADINE
     Indication: Cough

REACTIONS (2)
  - Drug ineffective [Unknown]
  - Off label use [Unknown]

NARRATIVE: CASE EVENT DATE: 20231227
